FAERS Safety Report 25552109 (Version 2)
Quarter: 2025Q3

REPORT INFORMATION
  Report Type: Report from Study
  Country: US (occurrence: US)
  Receive Date: 20250715
  Receipt Date: 20250729
  Transmission Date: 20251020
  Serious: Yes (Other)
  Sender: ABBVIE
  Company Number: US-ABBVIE-6366514

PATIENT
  Sex: Male

DRUGS (2)
  1. RINVOQ [Suspect]
     Active Substance: UPADACITINIB
     Indication: Psoriatic arthropathy
     Route: 048
     Dates: start: 20230901
  2. RINVOQ [Suspect]
     Active Substance: UPADACITINIB
     Indication: Psoriatic arthropathy
     Route: 048

REACTIONS (11)
  - Polycythaemia vera [Not Recovered/Not Resolved]
  - Renal impairment [Unknown]
  - Hepatic function abnormal [Unknown]
  - Aspartate aminotransferase increased [Not Recovered/Not Resolved]
  - Alanine aminotransferase increased [Not Recovered/Not Resolved]
  - Blood creatine phosphokinase increased [Unknown]
  - Blood glucose increased [Unknown]
  - Renal impairment [Unknown]
  - Hepatic enzyme increased [Unknown]
  - Off label use [Unknown]
  - Glomerular filtration rate abnormal [Unknown]
